FAERS Safety Report 24167761 (Version 1)
Quarter: 2024Q3

REPORT INFORMATION
  Report Type: Spontaneous
  Country: US (occurrence: None)
  Receive Date: 20240801
  Receipt Date: 20240801
  Transmission Date: 20241017
  Serious: Yes (Life-Threatening, Hospitalization)
  Sender: Public
  Company Number: None

PATIENT
  Age: 8 Year
  Sex: Male
  Weight: 38.1 kg

DRUGS (6)
  1. XOLAIR [Suspect]
     Active Substance: OMALIZUMAB
     Indication: Asthma
     Dosage: 375 MG Q14 DAYS SUBCUTANEOUS
     Route: 058
     Dates: start: 20240730, end: 20240730
  2. XOLAIR [Suspect]
     Active Substance: OMALIZUMAB
     Indication: Food allergy
  3. Symbicort 80-4.5 mcg/puff inhaler [Concomitant]
  4. albuterol 90mcg/puff inhaler [Concomitant]
  5. cetirizine 1mg/ml soln [Concomitant]
  6. fluticasone 50mcg/spray nasal spray [Concomitant]

REACTIONS (11)
  - Anaphylactic reaction [None]
  - Throat irritation [None]
  - Ear pruritus [None]
  - Pruritus [None]
  - Malaise [None]
  - Swelling face [None]
  - Lip swelling [None]
  - Oral pruritus [None]
  - Throat tightness [None]
  - Dyspnoea [None]
  - Cough [None]

NARRATIVE: CASE EVENT DATE: 20240730
